FAERS Safety Report 6450897-9 (Version None)
Quarter: 2009Q4

REPORT INFORMATION
  Report Type: 
  Country: None (occurrence: None)
  Receive Date: 20091123
  Receipt Date: 20091109
  Transmission Date: 20100525
  Serious: Yes (Death, Hospitalization)
  Sender: FDA-Public Use
  Company Number: GB-PFIZER INC-2009241915

PATIENT
  Age: 63 Year
  Sex: Male
  Weight: 86 kg

DRUGS (10)
  1. CP-751,871 [Suspect]
     Indication: PROSTATE CANCER
     Dosage: 1960 MG, 3 X A WEEK
     Route: 042
     Dates: start: 20090407, end: 20090707
  2. PREDNISOLONE [Suspect]
     Indication: PROSTATE CANCER
     Dosage: 5 MG, 1X/DAY
     Route: 048
     Dates: start: 20090407
  3. *DOCETAXEL [Suspect]
     Indication: PROSTATE CANCER
     Dosage: UNK
     Dates: end: 20081020
  4. OMEPRAZOLE [Concomitant]
     Dosage: 20 MG, 2X/DAY
     Route: 048
  5. OXYCONTIN [Concomitant]
     Dosage: 10 MG, 2X/DAY
     Route: 048
  6. LACTULOSE [Concomitant]
     Dosage: 20 MG, 1X/DAY
     Route: 048
  7. ADCAL-D3 [Concomitant]
     Dosage: 1 DF, 2X/DAY
     Route: 048
  8. SENNA [Concomitant]
     Dosage: 2 DF, 1X/DAY
     Route: 048
  9. DECAPEPTYL - SLOW RELEASE [Concomitant]
     Dosage: 11.25 MG, EVERY 3 MONTHS
     Dates: start: 20000707
  10. DIAZEPAM [Concomitant]
     Dosage: 2 MG, 3X/DAY

REACTIONS (14)
  - DISEASE PROGRESSION [None]
  - DYSPHAGIA [None]
  - DYSPHONIA [None]
  - FALL [None]
  - GASTROINTESTINAL DISORDER [None]
  - HEAD INJURY [None]
  - LETHARGY [None]
  - MALAISE [None]
  - OROPHARYNGEAL PAIN [None]
  - PAIN [None]
  - PNEUMONIA [None]
  - PROSTATE CANCER [None]
  - PROSTATE CANCER METASTATIC [None]
  - VOCAL CORD DISORDER [None]
